FAERS Safety Report 5209885-2 (Version None)
Quarter: 2006Q4

REPORT INFORMATION
  Report Type: 
  Country: None (occurrence: None)
  Receive Date: 20061130
  Receipt Date: 20060710
  Transmission Date: 20070319
  Serious: Yes (Other)
  Sender: FDA-Public Use
  Company Number: 2006073060

PATIENT
  Age: 76 Year
  Sex: Female
  Weight: 66.7 kg

DRUGS (28)
  1. ZYVOX [Suspect]
     Indication: ENDOCARDITIS
     Dosage: 1200 MG (600 MG, 2 IN 1 D), INTRAVENOUS
     Route: 042
     Dates: start: 20060601, end: 20060614
  2. SODIUM CHLORIDE 0.9% [Concomitant]
  3. PROMETHAZINE [Concomitant]
  4. ALBUTEROL SULFATE/IPRATROPIUM BROMIDE (IPRATROPIUM BROMIDE, SALBUTAMOL [Concomitant]
  5. ZOCOR [Concomitant]
  6. EPOETIN ALFA (EPOETIN ALFA) [Concomitant]
  7. FERROUS SULFATE TAB [Concomitant]
  8. ASPIRIN [Concomitant]
  9. TYLENOL [Concomitant]
  10. ALPRAZOLAM [Concomitant]
  11. ALUMINUM HYDROXIDE AND MAGNESIUM TRISILICATE [Concomitant]
  12. MAGNESIUM HYDROXIDE (MAGNESIUM HYDROXIDE) [Concomitant]
  13. NITROGLYCERIN [Concomitant]
  14. AMBIEN [Concomitant]
  15. ZOFRAN [Concomitant]
  16. SODIUM CHLORIDE [Concomitant]
  17. METRONIDAZOLE [Concomitant]
  18. NOVOLOG [Concomitant]
  19. PROTONIX [Concomitant]
  20. VANCOMYCIN [Concomitant]
  21. CALCIUM CARBONATE (CALCIUM CARBONATE) [Concomitant]
  22. COREG [Concomitant]
  23. COLESEVELAM (COLSEVELAM) [Concomitant]
  24. TRYPSIN (TRYPSIN) [Concomitant]
  25. CASTOR OIL (CASTER OIL) [Concomitant]
  26. TPN [Concomitant]
  27. VALSARTAN [Concomitant]
  28. LASIX [Concomitant]

REACTIONS (2)
  - BLOOD IRON INCREASED [None]
  - THROMBOCYTOPENIA [None]
